FAERS Safety Report 23525096 (Version 1)
Quarter: 2024Q1

REPORT INFORMATION
  Report Type: Spontaneous
  Country: US (occurrence: US)
  Receive Date: 20240215
  Receipt Date: 20240215
  Transmission Date: 20240410
  Serious: Yes (Hospitalization, Other)
  Sender: FDA-Public Use
  Company Number: US-UCBSA-2024006624

PATIENT
  Age: 52 Year
  Sex: Female

DRUGS (1)
  1. CIMZIA [Suspect]
     Active Substance: CERTOLIZUMAB PEGOL
     Indication: Product used for unknown indication
     Dosage: SYRINGE OTHER
     Route: 058
     Dates: start: 201908

REACTIONS (2)
  - Nephrolithiasis [Unknown]
  - Renal stone removal [Unknown]

NARRATIVE: CASE EVENT DATE: 20211011
